FAERS Safety Report 6401321-3 (Version None)
Quarter: 2009Q4

REPORT INFORMATION
  Report Type: 
  Country: None (occurrence: None)
  Receive Date: 20091015
  Receipt Date: 20070322
  Transmission Date: 20100525
  Serious: Yes (Disabling)
  Sender: FDA-Public Use
  Company Number: US-ASTRAZENECA-2006UW08123

PATIENT
  Sex: Male
  Weight: 93 kg

DRUGS (9)
  1. SEROQUEL [Suspect]
     Dosage: 100-800 MG
     Route: 048
     Dates: start: 20020626
  2. RISPERDAL [Concomitant]
     Route: 048
     Dates: start: 20021017
  3. ZZ PAXIL [Concomitant]
     Dates: start: 20020723
  4. LISINOPRIL [Concomitant]
     Dates: start: 20060802
  5. METFORMIN HYDROCHLORIDE [Concomitant]
     Dates: start: 20060802
  6. LIPITOR [Concomitant]
     Dates: start: 20060802
  7. ARIPIPRAZOLE [Concomitant]
     Dates: start: 20060802
  8. HYDROCHLOROTHIAZIDE [Concomitant]
     Dates: start: 20060802
  9. BUPROPION HCL [Concomitant]
     Dates: start: 20060802

REACTIONS (1)
  - ILL-DEFINED DISORDER [None]
